FAERS Safety Report 20698796 (Version 3)
Quarter: 2025Q1

REPORT INFORMATION
  Report Type: Spontaneous
  Country: XI (occurrence: GB)
  Receive Date: 20220412
  Receipt Date: 20250106
  Transmission Date: 20250408
  Serious: Yes (Other)
  Sender: AUROBINDO
  Company Number: XI-EMA-DD-20211229-PAWAR_P-070211

PATIENT
  Age: 54 Year
  Sex: Male
  Weight: 78.01 kg

DRUGS (1)
  1. CITALOPRAM [Suspect]
     Active Substance: CITALOPRAM
     Indication: Ill-defined disorder
     Route: 048
     Dates: start: 20211010

REACTIONS (1)
  - Bladder disorder [Not Recovered/Not Resolved]

NARRATIVE: CASE EVENT DATE: 20211111
